FAERS Safety Report 5029302-5 (Version None)
Quarter: 2006Q2

REPORT INFORMATION
  Report Type: 
  Country: None (occurrence: None)
  Receive Date: 20060616
  Receipt Date: 20060616
  Transmission Date: 20061013
  Serious: Yes (Other)
  Sender: FDA-Public Use
  Company Number: None

PATIENT
  Age: 27 Year
  Sex: Female
  Weight: 58.9676 kg

DRUGS (2)
  1. KETEK [Suspect]
     Indication: EAR INFECTION
     Dosage: 800 MG ONCE DAILY PO
     Route: 048
     Dates: start: 20060419, end: 20060428
  2. KETEK [Suspect]
     Indication: SINUSITIS
     Dosage: 800 MG ONCE DAILY PO
     Route: 048
     Dates: start: 20060419, end: 20060428

REACTIONS (12)
  - ABDOMINAL DISTENSION [None]
  - ABDOMINAL PAIN UPPER [None]
  - ALANINE AMINOTRANSFERASE INCREASED [None]
  - ANOREXIA [None]
  - ASPARTATE AMINOTRANSFERASE INCREASED [None]
  - DIARRHOEA [None]
  - FATIGUE [None]
  - FEELING ABNORMAL [None]
  - FLANK PAIN [None]
  - INFLUENZA LIKE ILLNESS [None]
  - NAUSEA [None]
  - PYREXIA [None]
